FAERS Safety Report 25847268 (Version 1)
Quarter: 2025Q3

REPORT INFORMATION
  Report Type: Spontaneous
  Country: US (occurrence: US)
  Receive Date: 20250925
  Receipt Date: 20250925
  Transmission Date: 20251020
  Serious: No
  Sender: ANI
  Company Number: US-ANIPHARMA-030649

PATIENT
  Sex: Female

DRUGS (1)
  1. LORAZEPAM [Suspect]
     Active Substance: LORAZEPAM
     Indication: Product used for unknown indication

REACTIONS (2)
  - Product substitution issue [Unknown]
  - Drug ineffective [Unknown]
